FAERS Safety Report 12728297 (Version 1)
Quarter: 2016Q3

REPORT INFORMATION
  Report Type: Spontaneous
  Country: US (occurrence: US)
  Receive Date: 20160907
  Receipt Date: 20160907
  Transmission Date: 20161109
  Serious: Yes (Disabling)
  Sender: FDA-Public Use
  Company Number: None

PATIENT
  Age: 57 Year
  Sex: Female
  Weight: 70.2 kg

DRUGS (3)
  1. LOSARTAN POTASSIUM. [Concomitant]
     Active Substance: LOSARTAN POTASSIUM
  2. CLOBETASOL PROPIONATE OINT, 0.05 [Suspect]
     Active Substance: CLOBETASOL PROPIONATE
     Indication: ECZEMA
     Dosage: OTHER STRENGTH:;OTHER DOSE:;OTHER FREQUENCY:SEE PREVIOUS PAGE;OTHER ROUTE:
     Route: 061
     Dates: start: 20160707
  3. RIZATRIPTAN BENZOATE. [Concomitant]
     Active Substance: RIZATRIPTAN BENZOATE

REACTIONS (2)
  - Skin exfoliation [None]
  - Application site exfoliation [None]

NARRATIVE: CASE EVENT DATE: 20160815
